FAERS Safety Report 16426345 (Version 1)
Quarter: 2019Q3

REPORT INFORMATION
  Report Type: Spontaneous
  Country: US (occurrence: US)
  Receive Date: 20190612
  Receipt Date: 20190612
  Transmission Date: 20191004
  Serious: Yes (Life-Threatening, Hospitalization, Disabling, Other)
  Sender: FDA-Public Use
  Company Number: None

PATIENT
  Age: 63 Year
  Sex: Female
  Weight: 73.35 kg

DRUGS (2)
  1. EYLEA [Suspect]
     Active Substance: AFLIBERCEPT
     Indication: BLINDNESS
  2. EYLEA [Suspect]
     Active Substance: AFLIBERCEPT
     Indication: EYE DISORDER PROPHYLAXIS

REACTIONS (2)
  - Alopecia [None]
  - Pulmonary embolism [None]

NARRATIVE: CASE EVENT DATE: 20190611
